FAERS Safety Report 5346652-3 (Version None)
Quarter: 2007Q2

REPORT INFORMATION
  Report Type: 
  Country: None (occurrence: None)
  Receive Date: 20070605
  Receipt Date: 20070530
  Transmission Date: 20071010
  Serious: Yes (Death)
  Sender: FDA-Public Use
  Company Number: JP-PFIZER INC-2007039076

PATIENT
  Sex: Female

DRUGS (2)
  1. ZOLOFT [Suspect]
     Indication: DEPRESSION
     Dosage: DAILY DOSE:50MG
     Dates: start: 20070410, end: 20070418
  2. SOLANAX [Concomitant]
     Route: 048
     Dates: start: 20070328, end: 20070410

REACTIONS (4)
  - AKATHISIA [None]
  - ASTHENIA [None]
  - DEATH [None]
  - IRRITABILITY [None]
